FAERS Safety Report 8906908 (Version 1)
Quarter: 2012Q4

REPORT INFORMATION
  Report Type: 
  Country: US (occurrence: US)
  Receive Date: 20121113
  Receipt Date: 20121113
  Transmission Date: 20130627
  Serious: No
  Sender: FDA-Public Use
  Company Number: US-AMGEN-USASP2012010930

PATIENT
  Age: 37 Year
  Sex: Female

DRUGS (2)
  1. ENBREL [Suspect]
     Indication: PSORIASIS
     Dates: start: 201108, end: 20120119
  2. HUMIRA [Concomitant]
     Dates: start: 20120202

REACTIONS (2)
  - Respiratory disorder [Recovered/Resolved]
  - Cough [Recovered/Resolved]
